FAERS Safety Report 12503048 (Version 3)
Quarter: 2016Q3

REPORT INFORMATION
  Report Type: Report from Study
  Country: GB (occurrence: GB)
  Receive Date: 20160628
  Receipt Date: 20160720
  Transmission Date: 20161109
  Serious: Yes (Hospitalization)
  Sender: FDA-Public Use
  Company Number: GB-ACCORD-041812

PATIENT
  Age: 46 Year
  Sex: Male
  Weight: 70.6 kg

DRUGS (10)
  1. FORTISIP [Concomitant]
     Active Substance: CARBOHYDRATES\FATTY ACIDS\MINERALS\PROTEIN\VITAMINS
     Dates: start: 20160421
  2. CISPLATIN. [Suspect]
     Active Substance: CISPLATIN
     Indication: OESOPHAGEAL ADENOCARCINOMA
     Dosage: ON DAY ONE OF 21 DAY CYCLE
     Route: 042
     Dates: start: 20160415
  3. MEGACE [Concomitant]
     Active Substance: MEGESTROL ACETATE
     Dates: start: 20160415
  4. CYCLIZINE [Concomitant]
     Active Substance: CYCLIZINE
  5. ONDANSETRON [Concomitant]
     Active Substance: ONDANSETRON
     Dates: start: 20160415, end: 20160523
  6. LANSOPRAZOLE. [Concomitant]
     Active Substance: LANSOPRAZOLE
     Route: 065
     Dates: start: 201601
  7. LISINOPRIL. [Concomitant]
     Active Substance: LISINOPRIL
     Dates: start: 2010
  8. METOCLOPRAMIDE. [Concomitant]
     Active Substance: METOCLOPRAMIDE
     Dates: start: 20160414
  9. XELODA [Suspect]
     Active Substance: CAPECITABINE
     Indication: OESOPHAGEAL ADENOCARCINOMA
     Dosage: ONE TO 14 DAY, EVERY 21 DAY CYCLE, 20-MAY-2016, DATE OF MOST RECEIVE DOSE PRIOR TO SAE
     Route: 048
     Dates: start: 20160415
  10. COCODAMOL [Concomitant]
     Active Substance: ACETAMINOPHEN\CODEINE PHOSPHATE
     Route: 065
     Dates: start: 201601

REACTIONS (5)
  - Off label use [Unknown]
  - Dizziness [Unknown]
  - Malaise [Unknown]
  - Constipation [Not Recovered/Not Resolved]
  - Dehydration [Recovered/Resolved]

NARRATIVE: CASE EVENT DATE: 20160522
